FAERS Safety Report 4598070-3 (Version None)
Quarter: 2005Q1

REPORT INFORMATION
  Report Type: 
  Country: None (occurrence: None)
  Receive Date: 20050304
  Receipt Date: 20050202
  Transmission Date: 20050727
  Serious: Yes (Hospitalization, Disabling)
  Sender: FDA-Public Use
  Company Number: 200510432FR

PATIENT
  Age: 52 Year
  Sex: Female

DRUGS (2)
  1. TAXOTERE [Suspect]
     Indication: INFLAMMATORY CARCINOMA OF THE BREAST
     Route: 042
     Dates: start: 20041028, end: 20041028
  2. MYOCET [Suspect]
     Indication: INFLAMMATORY CARCINOMA OF THE BREAST
     Route: 042
     Dates: start: 20041028, end: 20041028

REACTIONS (4)
  - ERYTHEMA [None]
  - EXTRAVASATION [None]
  - INFUSION SITE REACTION [None]
  - SKIN NECROSIS [None]
